FAERS Safety Report 24140357 (Version 2)
Quarter: 2024Q3

REPORT INFORMATION
  Report Type: Spontaneous
  Country: CN (occurrence: CN)
  Receive Date: 20240726
  Receipt Date: 20240807
  Transmission Date: 20241016
  Serious: Yes (Hospitalization, Other)
  Sender: REGENERON
  Company Number: CN-SANOFI-01799588

PATIENT
  Age: 61 Year
  Sex: Male

DRUGS (27)
  1. PRALUENT [Suspect]
     Active Substance: ALIROCUMAB
     Indication: Hyperlipidaemia
     Dosage: 75 MG, QOW
     Route: 065
     Dates: start: 20230821, end: 2023
  2. PRALUENT [Suspect]
     Active Substance: ALIROCUMAB
     Dosage: 75 MG, Q3W
     Route: 058
     Dates: start: 20231016, end: 2024
  3. PRALUENT [Suspect]
     Active Substance: ALIROCUMAB
     Dosage: 75 MG, QOW
     Route: 058
     Dates: start: 2024, end: 2024
  4. PRALUENT [Suspect]
     Active Substance: ALIROCUMAB
     Dosage: 75 MG, Q3W
     Route: 058
     Dates: start: 202407
  5. ROSUVASTATIN [Concomitant]
     Active Substance: ROSUVASTATIN\ROSUVASTATIN CALCIUM
     Indication: Lipids increased
     Dosage: UNK
  6. ROSUVASTATIN [Concomitant]
     Active Substance: ROSUVASTATIN\ROSUVASTATIN CALCIUM
     Dosage: UNK
  7. ROSUVASTATIN [Concomitant]
     Active Substance: ROSUVASTATIN\ROSUVASTATIN CALCIUM
     Dosage: UNK
  8. ROSUVASTATIN [Concomitant]
     Active Substance: ROSUVASTATIN\ROSUVASTATIN CALCIUM
     Dosage: UNK
  9. GLUCOBAY [Concomitant]
     Active Substance: ACARBOSE
     Dosage: UNK
  10. GLUCOBAY [Concomitant]
     Active Substance: ACARBOSE
     Dosage: UNK
  11. GLUCOBAY [Concomitant]
     Active Substance: ACARBOSE
     Dosage: UNK
  12. GLUCOBAY [Concomitant]
     Active Substance: ACARBOSE
     Dosage: UNK
  13. CAPTOPRIL [Concomitant]
     Active Substance: CAPTOPRIL
     Indication: Hypertension
     Dosage: UNK
  14. CAPTOPRIL [Concomitant]
     Active Substance: CAPTOPRIL
     Dosage: UNK
  15. CAPTOPRIL [Concomitant]
     Active Substance: CAPTOPRIL
     Dosage: UNK
  16. CAPTOPRIL [Concomitant]
     Active Substance: CAPTOPRIL
     Dosage: UNK
  17. METOPROLOL TARTRATE [Concomitant]
     Active Substance: METOPROLOL TARTRATE
     Indication: Hypertension
     Dosage: UNK
  18. METOPROLOL TARTRATE [Concomitant]
     Active Substance: METOPROLOL TARTRATE
     Dosage: UNK
  19. METOPROLOL TARTRATE [Concomitant]
     Active Substance: METOPROLOL TARTRATE
     Dosage: UNK
  20. METOPROLOL TARTRATE [Concomitant]
     Active Substance: METOPROLOL TARTRATE
     Dosage: UNK
  21. FOLIC ACID [Concomitant]
     Active Substance: FOLIC ACID
     Indication: Product used for unknown indication
     Dosage: UNK
  22. FOLIC ACID [Concomitant]
     Active Substance: FOLIC ACID
     Dosage: UNK
  23. FOLIC ACID [Concomitant]
     Active Substance: FOLIC ACID
     Dosage: UNK
  24. ESSENTIALE FORTE [Concomitant]
     Indication: Product used for unknown indication
     Dosage: UNK
  25. ESSENTIALE FORTE [Concomitant]
     Dosage: UNK
  26. ESSENTIALE FORTE [Concomitant]
     Dosage: UNK
  27. ESSENTIALE FORTE [Concomitant]
     Dosage: UNK

REACTIONS (10)
  - Adrenal mass [Unknown]
  - Hyperplasia adrenal [Unknown]
  - Intestinal polypectomy [Recovering/Resolving]
  - Hepatic function abnormal [Not Recovered/Not Resolved]
  - Blood bilirubin increased [Not Recovered/Not Resolved]
  - Gamma-glutamyltransferase increased [Not Recovered/Not Resolved]
  - Blood glucose increased [Unknown]
  - Inappropriate schedule of product administration [Unknown]
  - Product prescribing error [Unknown]
  - Injection site swelling [Unknown]

NARRATIVE: CASE EVENT DATE: 20230901
